FAERS Safety Report 9987016 (Version 1)
Quarter: 2014Q1

REPORT INFORMATION
  Report Type: Report from Study
  Country: US (occurrence: US)
  Receive Date: 20140307
  Receipt Date: 20140307
  Transmission Date: 20141002
  Serious: No
  Sender: FDA-Public Use
  Company Number: US-ABBVIE-13P-163-1080435-00

PATIENT
  Age: 26 Year
  Sex: Female

DRUGS (4)
  1. HUMIRA [Suspect]
     Indication: CROHN^S DISEASE
  2. SYNTHROID [Concomitant]
     Indication: HYPOTHYROIDISM
  3. ZYRTEC [Concomitant]
     Indication: MULTIPLE ALLERGIES
  4. QUASENSE (GENERIC FOR SEASONALE) [Concomitant]
     Indication: CONTRACEPTION
     Dosage: PILL, 1 DAILY

REACTIONS (2)
  - Rash [Not Recovered/Not Resolved]
  - Injection site reaction [Not Recovered/Not Resolved]
